FAERS Safety Report 14325963 (Version 9)
Quarter: 2019Q1

REPORT INFORMATION
  Report Type: Spontaneous
  Country: CZ (occurrence: CZ)
  Receive Date: 20171226
  Receipt Date: 20190102
  Transmission Date: 20190417
  Serious: Yes (Other)
  Sender: FDA-Public Use
  Company Number: CZ-MYLANLABS-2017M1082273

PATIENT
  Age: 30 Year
  Sex: Female

DRUGS (22)
  1. PACLITAXEL. [Suspect]
     Active Substance: PACLITAXEL
     Dosage: 175 MILLIGRAM/SQ. METER
     Route: 065
  2. TRASTUZUMAB. [Suspect]
     Active Substance: TRASTUZUMAB
     Dosage: UNK, QCYCLE
     Route: 042
     Dates: start: 201505
  3. PERTUZUMAB. [Suspect]
     Active Substance: PERTUZUMAB
     Indication: HER-2 POSITIVE BREAST CANCER
     Dosage: 600 MG, 3XW, 7 CYCLICAL
     Route: 065
     Dates: start: 201505
  4. EPIRUBICIN [Suspect]
     Active Substance: EPIRUBICIN
     Dosage: 90 MILLIGRAM/SQ. METER
  5. DOCETAXEL. [Suspect]
     Active Substance: DOCETAXEL
     Indication: HER-2 POSITIVE BREAST CANCER
     Dosage: 175 MILLIGRAM/SQ. METER, CYCLE (175 MG/M2,6 CYCLICAL)
     Route: 042
     Dates: start: 201505
  6. PERTUZUMAB. [Suspect]
     Active Substance: PERTUZUMAB
     Dosage: UNK
     Route: 065
     Dates: start: 2014, end: 2014
  7. TRASTUZUMAB. [Suspect]
     Active Substance: TRASTUZUMAB
     Dosage: 8 MILLIGRAM/KILOGRAM
     Route: 058
     Dates: end: 201503
  8. EPIRUBICIN [Suspect]
     Active Substance: EPIRUBICIN
     Indication: HER-2 POSITIVE BREAST CANCER
     Dosage: 90 MG/M2, Q3W
     Route: 065
     Dates: start: 201406
  9. TRASTUZUMAB. [Suspect]
     Active Substance: TRASTUZUMAB
     Dosage: 2.4 MILLIGRAM/KILOGRAM, Q3W
     Route: 065
  10. HEPARIN [Concomitant]
     Active Substance: HEPARIN SODIUM
     Indication: THROMBOSIS IN DEVICE
     Dosage: UNK
     Route: 065
  11. PACLITAXEL. [Suspect]
     Active Substance: PACLITAXEL
     Indication: HER-2 POSITIVE BREAST CANCER
     Dosage: 175 MILLIGRAM/SQ. METER, QD
     Route: 065
  12. TRASTUZUMAB. [Suspect]
     Active Substance: TRASTUZUMAB
     Dosage: 6 MILLIGRAM/KILOGRAM, Q3W
     Route: 065
  13. CYCLOPHOSPHAMIDE. [Suspect]
     Active Substance: CYCLOPHOSPHAMIDE
     Indication: HER-2 POSITIVE BREAST CANCER
     Dosage: 600 MG/M2, Q3W
     Route: 065
     Dates: start: 201406
  14. TRASTUZUMAB. [Suspect]
     Active Substance: TRASTUZUMAB
     Indication: HER-2 POSITIVE BREAST CANCER
     Dosage: 7 CYCLICAL
     Route: 065
     Dates: start: 201505
  15. TRASTUZUMAB. [Suspect]
     Active Substance: TRASTUZUMAB
     Dosage: 3.6 MG/KG EVERY 21 DAYS ^RE-STARTED WITH 2,4 MG/KG EVERY 21 DAYS
     Route: 058
  16. TRASTUZUMAB. [Suspect]
     Active Substance: TRASTUZUMAB
     Dosage: UNK
     Route: 065
     Dates: start: 2014, end: 2014
  17. PERTUZUMAB. [Suspect]
     Active Substance: PERTUZUMAB
     Dosage: UNK, CYCLE
     Route: 065
     Dates: start: 201505
  18. PACLITAXEL. [Suspect]
     Active Substance: PACLITAXEL
     Dosage: UNK
     Route: 065
     Dates: start: 2014, end: 2014
  19. TRASTUZUMAB. [Suspect]
     Active Substance: TRASTUZUMAB
     Dosage: 3.6 MG/KG EVERY 21 DAYS ^RE-STARTED WITH 2,4 MG/KG EVERY 21 DAYS
     Route: 065
  20. TRASTUZUMAB. [Suspect]
     Active Substance: TRASTUZUMAB
     Dosage: 3.6 MG/KG EVERY 21 DAYS ^RE-STARTED WITH 2,4 MG/KG EVERY 21 DAYS
     Route: 065
     Dates: start: 201602
  21. TRASTUZUMAB. [Suspect]
     Active Substance: TRASTUZUMAB
     Dosage: 8 MILLIGRAM/KILOGRAM
     Route: 058
     Dates: start: 201505
  22. DOCETAXEL. [Suspect]
     Active Substance: DOCETAXEL
     Dosage: UNK, CYCLE,6 CYCLE
     Route: 042
     Dates: start: 201505, end: 201505

REACTIONS (3)
  - Product use in unapproved indication [Unknown]
  - Neurotoxicity [Unknown]
  - Vena cava thrombosis [Recovered/Resolved]

NARRATIVE: CASE EVENT DATE: 201412
